FAERS Safety Report 14635620 (Version 2)
Quarter: 2018Q1

REPORT INFORMATION
  Report Type: Spontaneous
  Country: US (occurrence: US)
  Receive Date: 20180314
  Receipt Date: 20180316
  Transmission Date: 20180509
  Serious: No
  Sender: FDA-Public Use
  Company Number: US-BAYER-2018-048198

PATIENT
  Age: 49 Year
  Sex: Female

DRUGS (1)
  1. GADAVIST [Suspect]
     Active Substance: GADOBUTROL
     Indication: NUCLEAR MAGNETIC RESONANCE IMAGING ABDOMINAL
     Dosage: 11.3 ML, ONCE
     Route: 042
     Dates: start: 20180312, end: 20180312

REACTIONS (3)
  - Erythema [None]
  - Injection site erythema [None]
  - Muscle tightness [None]

NARRATIVE: CASE EVENT DATE: 20180312
